FAERS Safety Report 9202396 (Version 1)
Quarter: 2013Q2

REPORT INFORMATION
  Report Type: Spontaneous
  Country: US (occurrence: US)
  Receive Date: 20130401
  Receipt Date: 20130401
  Transmission Date: 20140414
  Serious: No
  Sender: FDA-Public Use
  Company Number: US-PFIZER INC-2013103189

PATIENT
  Age: 85 Year
  Sex: Female
  Weight: 79.37 kg

DRUGS (6)
  1. CELEBREX [Suspect]
     Indication: LOCAL SWELLING
     Dosage: 100 MG, 2X/DAY
     Dates: end: 201303
  2. CELEBREX [Suspect]
     Indication: SENSATION OF HEAVINESS
  3. CRESTOR [Concomitant]
     Indication: PARAESTHESIA
     Dosage: UNK
  4. PRIMIDONE [Concomitant]
     Indication: TREMOR
     Dosage: UNK
  5. HYZAAR [Concomitant]
     Dosage: UNK
  6. CYMBALTA [Concomitant]
     Dosage: UNK

REACTIONS (1)
  - Gait disturbance [Recovering/Resolving]
